FAERS Safety Report 11788192 (Version 1)
Quarter: 2015Q4

REPORT INFORMATION
  Report Type: Report from Study
  Country: US (occurrence: US)
  Receive Date: 20151201
  Receipt Date: 20151201
  Transmission Date: 20160305
  Serious: Yes (Hospitalization)
  Sender: FDA-Public Use
  Company Number: US-ROCHE-1667067

PATIENT
  Age: 56 Year
  Sex: Female

DRUGS (3)
  1. PACLITAXEL. [Suspect]
     Active Substance: PACLITAXEL
     Indication: ENDOMETRIAL CANCER
     Dosage: OVER 3 HRS ON DAY 1 X 6 CYCLES
     Route: 042
     Dates: start: 20100805
  2. CARBOPLATIN. [Suspect]
     Active Substance: CARBOPLATIN
     Indication: ENDOMETRIAL CANCER
     Dosage: AUC = 6 IV OVER 30 MINUTES ON DAY 1 X 6 CYCLES
     Route: 042
     Dates: start: 20100805
  3. BEVACIZUMAB [Suspect]
     Active Substance: BEVACIZUMAB
     Indication: ENDOMETRIAL CANCER
     Dosage: OVER 30 TO 90 MINUTES ON DAY 1
     Route: 042
     Dates: start: 20100805

REACTIONS (3)
  - Hypophosphataemia [Recovered/Resolved]
  - Hyperglycaemia [Recovered/Resolved]
  - Anaemia [Recovered/Resolved]

NARRATIVE: CASE EVENT DATE: 20100825
